FAERS Safety Report 8155212-0 (Version None)
Quarter: 2012Q1

REPORT INFORMATION
  Report Type: 
  Country: None (occurrence: None)
  Receive Date: 20120222
  Receipt Date: 20120213
  Transmission Date: 20120608
  Serious: Yes (Hospitalization)
  Sender: FDA-Public Use
  Company Number: US-BIOGENIDEC-2011BI046379

PATIENT
  Age: 53 Year
  Sex: Female

DRUGS (2)
  1. INTERFERON [Concomitant]
     Route: 042
  2. TYSABRI [Suspect]
     Indication: MULTIPLE SCLEROSIS
     Route: 042
     Dates: start: 20111007

REACTIONS (4)
  - INTESTINAL OBSTRUCTION [None]
  - ENTERITIS INFECTIOUS [None]
  - PAIN [None]
  - FISTULA [None]
